FAERS Safety Report 6282249-9 (Version None)
Quarter: 2009Q3

REPORT INFORMATION
  Report Type: 
  Country: None (occurrence: None)
  Receive Date: 20090724
  Receipt Date: 20090715
  Transmission Date: 20100115
  Serious: Yes (Death)
  Sender: FDA-Public Use
  Company Number: TR-BAYER-200925677GPV

PATIENT
  Age: 49 Year
  Sex: Female
  Weight: 54 kg

DRUGS (5)
  1. AVELOX [Suspect]
     Indication: BRONCHITIS
     Dosage: TOTAL DAILY DOSE: 400 MG  UNIT DOSE: 400 MG
     Route: 048
  2. LUMINAL [Concomitant]
     Route: 048
  3. VENTOLIN [Concomitant]
     Route: 055
  4. PREDNOL [Concomitant]
  5. TEOBAG [Concomitant]

REACTIONS (1)
  - DEATH [None]
